FAERS Safety Report 4385444-9 (Version None)
Quarter: 2004Q2

REPORT INFORMATION
  Report Type: 
  Country: None (occurrence: None)
  Receive Date: 20040622
  Receipt Date: 20040615
  Transmission Date: 20050107
  Serious: Yes (Life-Threatening)
  Sender: FDA-Public Use
  Company Number: 04P-163-0264232-00

PATIENT
  Age: 47 Year
  Sex: Male

DRUGS (5)
  1. RITONAVIR SOFT GELATIN CAPSULES (NORVIR) (RITONAVIR) [Suspect]
     Indication: HIV INFECTION
     Dosage: 1 IN 1, PER ORAL
     Route: 048
     Dates: start: 20030701, end: 20040608
  2. TIPRANAVIR [Concomitant]
  3. LAMIVUDINE [Concomitant]
  4. RITONAVIR [Concomitant]
  5. INSULIN NORDISK MIXTARD (PORK) [Concomitant]

REACTIONS (3)
  - ABDOMINAL PAIN [None]
  - GLOMERULONEPHRITIS ACUTE [None]
  - INFECTION IN AN IMMUNOCOMPROMISED HOST [None]
